FAERS Safety Report 8330779-8 (Version None)
Quarter: 2012Q2

REPORT INFORMATION
  Report Type: 
  Country: None (occurrence: None)
  Receive Date: 20120502
  Receipt Date: 20120410
  Transmission Date: 20120825
  Serious: No
  Sender: FDA-Public Use
  Company Number: US-AMGEN-USASP2012022551

PATIENT
  Age: 77 Year
  Sex: Female

DRUGS (1)
  1. ENBREL [Suspect]
     Indication: PSORIASIS
     Dosage: 50 MG, QWK
     Dates: start: 20120326

REACTIONS (5)
  - INJECTION SITE WARMTH [None]
  - INJECTION SITE RASH [None]
  - INJECTION SITE PRURITUS [None]
  - MOBILITY DECREASED [None]
  - INJECTION SITE PAIN [None]
